FAERS Safety Report 13586845 (Version 1)
Quarter: 2017Q2

REPORT INFORMATION
  Report Type: Spontaneous
  Country: US (occurrence: US)
  Receive Date: 20170526
  Receipt Date: 20170526
  Transmission Date: 20170830
  Serious: No
  Sender: FDA-Public Use
  Company Number: US-ROCHE-1307424

PATIENT
  Sex: Male

DRUGS (1)
  1. VALCYTE [Suspect]
     Active Substance: VALGANCICLOVIR HYDROCHLORIDE
     Indication: CYTOMEGALOVIRUS INFECTION
     Dosage: TWICE PER DAY
     Route: 065

REACTIONS (9)
  - Renal disorder [Unknown]
  - Gallbladder disorder [Unknown]
  - Pancreatic disorder [Unknown]
  - Liver function test increased [Unknown]
  - White blood cell count decreased [Unknown]
  - Arthralgia [Unknown]
  - Pain [Unknown]
  - Pain in extremity [Unknown]
  - Cholelithiasis [Unknown]
